FAERS Safety Report 25674929 (Version 1)
Quarter: 2025Q3

REPORT INFORMATION
  Report Type: Spontaneous
  Country: EU (occurrence: EU)
  Receive Date: 20250813
  Receipt Date: 20250813
  Transmission Date: 20251021
  Serious: Yes (Life-Threatening, Hospitalization)
  Sender: ACCORD
  Company Number: EU-MLMSERVICE-20250730-PI592648-00101-3

PATIENT
  Age: 66 Year
  Sex: Female

DRUGS (2)
  1. CISPLATIN [Suspect]
     Active Substance: CISPLATIN
     Indication: Squamous cell carcinoma of the cervix
  2. CISPLATIN [Suspect]
     Active Substance: CISPLATIN
     Indication: Cervix carcinoma stage III

REACTIONS (10)
  - Deep vein thrombosis [Recovering/Resolving]
  - Pulmonary embolism [Recovering/Resolving]
  - Respiratory failure [Recovering/Resolving]
  - Cerebral artery occlusion [Recovering/Resolving]
  - Cerebral ischaemia [Recovering/Resolving]
  - Cerebrovascular accident [Recovering/Resolving]
  - Gastric ulcer haemorrhage [Recovering/Resolving]
  - Right ventricular failure [Recovering/Resolving]
  - Pulmonary thrombosis [Recovering/Resolving]
  - Cerebral artery thrombosis [Recovering/Resolving]
